FAERS Safety Report 8786641 (Version 1)
Quarter: 2012Q4

REPORT INFORMATION
  Report Type: 
  Country: US (occurrence: US)
  Receive Date: 20120914
  Receipt Date: 20120914
  Transmission Date: 20130627
  Serious: No
  Sender: FDA-Public Use
  Company Number: US-VERTEX PHARMACEUTICAL INC.-AE-2012-009217

PATIENT
  Age: 63 Year
  Sex: Female
  Weight: 65.46 kg

DRUGS (3)
  1. INCIVEK [Suspect]
     Indication: HEPATITIS C
     Route: 048
     Dates: start: 20120523, end: 20120601
  2. PEGASYS [Concomitant]
     Indication: HEPATITIS C
     Dates: start: 20120523
  3. RIBAVIRIN [Concomitant]
     Indication: HEPATITIS C
     Route: 048
     Dates: start: 20120523

REACTIONS (6)
  - Abdominal pain [Recovered/Resolved]
  - Painful defaecation [Recovered/Resolved]
  - Rash generalised [Recovered/Resolved]
  - Proctalgia [Unknown]
  - Platelet count decreased [Unknown]
  - Rectal haemorrhage [Recovered/Resolved]
